FAERS Safety Report 8600842-2 (Version None)
Quarter: 2012Q3

REPORT INFORMATION
  Report Type: 
  Country: None (occurrence: None)
  Receive Date: 20120817
  Receipt Date: 20120807
  Transmission Date: 20120928
  Serious: Yes (Hospitalization)
  Sender: FDA-Public Use
  Company Number: US-ELI_LILLY_AND_COMPANY-US201203009208

PATIENT
  Age: 75 Year
  Sex: Female
  Weight: 73.469 kg

DRUGS (16)
  1. FORTEO [Suspect]
     Indication: OSTEOPOROSIS
     Dosage: 20 UG, QD
     Dates: start: 20110101, end: 20120401
  2. DILTIAZEM [Concomitant]
  3. FLUTICASONE PROPIONATE [Concomitant]
  4. FORTEO [Suspect]
     Dosage: 20 UG, QD
     Dates: start: 20120501
  5. SPIRIVA [Concomitant]
  6. ASPIRIN [Concomitant]
  7. CLOPIDOGREL [Concomitant]
  8. SIMVASTATIN [Concomitant]
  9. AMLODIPINE [Concomitant]
  10. CHOLECALCIFEROL [Concomitant]
  11. VESICARE [Concomitant]
  12. FUROSEMIDE [Concomitant]
  13. ANDOL [Concomitant]
  14. LISINOPRIL [Concomitant]
  15. METHYL SALICYLATE [Concomitant]
  16. FLUTICASONE PROPIONATE [Concomitant]

REACTIONS (3)
  - ATRIAL FIBRILLATION [None]
  - DRY MOUTH [None]
  - HEART VALVE INCOMPETENCE [None]
